FAERS Safety Report 8318736-9 (Version None)
Quarter: 2012Q2

REPORT INFORMATION
  Report Type: 
  Country: None (occurrence: None)
  Receive Date: 20120427
  Receipt Date: 20120423
  Transmission Date: 20120825
  Serious: Yes (Other)
  Sender: FDA-Public Use
  Company Number: KR-PFIZER INC-2012101031

PATIENT
  Age: 46 Year
  Sex: Male

DRUGS (2)
  1. MORPHINE SULFATE [Suspect]
     Indication: PAIN
     Dosage: CONCENTRATION OF 28MG/ML,BASAL RATE OF 0.5 ML/H
     Route: 008
  2. TRAMADOL [Suspect]
     Indication: PAIN
     Dosage: 50 MG, UNK
     Route: 051

REACTIONS (4)
  - DYSARTHRIA [None]
  - RESPIRATORY DEPRESSION [None]
  - SEDATION [None]
  - PNEUMONIA ASPIRATION [None]
